FAERS Safety Report 16668187 (Version 6)
Quarter: 2022Q1

REPORT INFORMATION
  Report Type: Spontaneous
  Country: US (occurrence: US)
  Receive Date: 20190805
  Receipt Date: 20220308
  Transmission Date: 20220423
  Serious: Yes (Other)
  Sender: FDA-Public Use
  Company Number: US-PFIZER INC-2019330659

PATIENT
  Age: 56 Year
  Sex: Female

DRUGS (4)
  1. SOMAVERT [Suspect]
     Active Substance: PEGVISOMANT
     Indication: Hyperpituitarism
     Dosage: 25 MG, DAILY
     Route: 058
     Dates: start: 20170919
  2. SOMAVERT [Suspect]
     Active Substance: PEGVISOMANT
     Indication: Acromegaly
     Dosage: 30 MG,DAILY
     Route: 058
     Dates: start: 20170919
  3. SOMAVERT [Suspect]
     Active Substance: PEGVISOMANT
     Indication: Gigantism
     Dosage: 30 MG (KIT 1=1)
     Dates: start: 20200331
  4. SOMAVERT [Suspect]
     Active Substance: PEGVISOMANT
     Dosage: 30 MG (KIT 1=1)
     Dates: start: 20210918

REACTIONS (6)
  - Fibrous dysplasia of bone [Unknown]
  - Skin discolouration [Unknown]
  - Insulin-like growth factor abnormal [Not Recovered/Not Resolved]
  - Malaise [Not Recovered/Not Resolved]
  - Urinary tract infection [Unknown]
  - Product dose omission issue [Unknown]

NARRATIVE: CASE EVENT DATE: 20210920
